FAERS Safety Report 10055956 (Version 2)
Quarter: 2014Q2

REPORT INFORMATION
  Report Type: Spontaneous
  Country: US (occurrence: US)
  Receive Date: 20140403
  Receipt Date: 20140403
  Transmission Date: 20141212
  Serious: No
  Sender: FDA-Public Use
  Company Number: US-PFIZER INC-2014080868

PATIENT
  Sex: 0

DRUGS (1)
  1. RELPAX [Suspect]
     Dosage: UNK

REACTIONS (3)
  - Drug dispensing error [Unknown]
  - Drug effect incomplete [Unknown]
  - Pain [Unknown]
